FAERS Safety Report 6924456-5 (Version None)
Quarter: 2010Q3

REPORT INFORMATION
  Report Type: 
  Country: None (occurrence: None)
  Receive Date: 20100810
  Receipt Date: 20100727
  Transmission Date: 20110219
  Serious: Yes (Death)
  Sender: FDA-Public Use
  Company Number: DSJ-2010-12463

PATIENT
  Age: 49 Year
  Sex: Male

DRUGS (1)
  1. SEVIKAR (OLMESARTAN MEDOXOMIL, ALMODIPINE BESILATE) (TABLET) (OLMESART [Suspect]
     Indication: HYPERTENSION
     Dosage: 5/20MG (1 IN 1 D), PER ORAL
     Route: 048

REACTIONS (1)
  - HYPERKALAEMIA [None]
